FAERS Safety Report 10160374 (Version 5)
Quarter: 2014Q3

REPORT INFORMATION
  Report Type: Spontaneous
  Country: DE (occurrence: DE)
  Receive Date: 20140508
  Receipt Date: 20140902
  Transmission Date: 20150326
  Serious: Yes (Other)
  Sender: FDA-Public Use
  Company Number: DE-GLAXOSMITHKLINE-D0083809A

PATIENT
  Age: 63 Year
  Sex: Female
  Weight: 65 kg

DRUGS (9)
  1. RAMIPRIL. [Concomitant]
     Active Substance: RAMIPRIL
     Indication: HYPERTENSION
     Dosage: 5MG PER DAY
     Route: 048
     Dates: start: 2011
  2. DELIX [Concomitant]
     Active Substance: RAMIPRIL
     Dosage: 5MG UNKNOWN
     Route: 048
  3. LETROZOLE. [Concomitant]
     Active Substance: LETROZOLE
     Dosage: 2.5MG UNKNOWN
     Route: 048
  4. DEXAMETHASON [Concomitant]
     Active Substance: DEXAMETHASONE
     Indication: NEOPLASM
     Dosage: 4MG UNKNOWN
     Route: 048
     Dates: start: 2012
  5. ARIXTRA [Suspect]
     Active Substance: FONDAPARINUX SODIUM
     Indication: NEOPLASM
     Dosage: 7.5ML TWICE PER DAY
     Route: 058
     Dates: start: 20140113
  6. MIRTAZAPIN [Concomitant]
     Active Substance: MIRTAZAPINE
     Dosage: 30MG UNKNOWN
     Route: 048
  7. BISOPROLOL [Concomitant]
     Active Substance: BISOPROLOL
     Dosage: 5MG UNKNOWN
     Route: 048
  8. EXEMESTAN [Concomitant]
     Active Substance: EXEMESTANE
     Indication: NEOPLASM
     Dosage: 25MG UNKNOWN
     Route: 048
     Dates: start: 2011
  9. TAFLUPROST [Concomitant]
     Active Substance: TAFLUPROST
     Route: 031

REACTIONS (7)
  - Injection site abscess [Recovered/Resolved]
  - Application site pruritus [Recovering/Resolving]
  - Rash macular [Recovered/Resolved]
  - Product quality issue [Unknown]
  - Application site erythema [Recovering/Resolving]
  - Rash pustular [Recovered/Resolved]
  - Bacterial infection [Recovered/Resolved]

NARRATIVE: CASE EVENT DATE: 201404
